FAERS Safety Report 9230474 (Version 1)
Quarter: 2013Q2

REPORT INFORMATION
  Report Type: Spontaneous
  Country: JP (occurrence: JP)
  Receive Date: 20130415
  Receipt Date: 20130415
  Transmission Date: 20140414
  Serious: Yes (Hospitalization)
  Sender: FDA-Public Use
  Company Number: PHHY2013JP035613

PATIENT
  Age: 68 Year
  Sex: Female

DRUGS (7)
  1. ESTRADIOL, NORETHISTERONE [Suspect]
     Indication: HORMONE REPLACEMENT THERAPY
     Route: 062
     Dates: start: 20090629, end: 20110307
  2. ADALAT CR [Concomitant]
     Indication: HYPERTENSION
     Dosage: 20 MG PER DAY
     Route: 048
     Dates: start: 20071127
  3. BEIGRACE [Concomitant]
     Indication: DIABETES MELLITUS
     Dosage: 0.9 MG, PER DAY
     Route: 048
     Dates: start: 20071127
  4. GLUFAST [Concomitant]
     Indication: DIABETES MELLITUS
     Dosage: 30 MG, PER DAY
     Route: 048
     Dates: start: 20071127
  5. ZETIA [Concomitant]
     Indication: HYPERLIPIDAEMIA
     Dosage: 10 MG, PER DAY
     Route: 048
     Dates: start: 20090629
  6. PLETAAL [Concomitant]
     Indication: HYPERLIPIDAEMIA
     Dosage: 200 MG, PER DAY
     Route: 048
     Dates: start: 20090320
  7. METHYLCOBAL [Concomitant]
     Indication: HYPERLIPIDAEMIA
     Dosage: 1500 MG, PER DAY
     Route: 048
     Dates: start: 20090320

REACTIONS (1)
  - Diabetes mellitus [Unknown]
